FAERS Safety Report 13328834 (Version 1)
Quarter: 2017Q1

REPORT INFORMATION
  Report Type: Spontaneous
  Country: US (occurrence: US)
  Receive Date: 20170312
  Receipt Date: 20170312
  Transmission Date: 20170428
  Serious: Yes (Life-Threatening, Hospitalization, Disabling)
  Sender: FDA-Public Use
  Company Number: None

PATIENT
  Age: 60 Year
  Sex: Male
  Weight: 66.15 kg

DRUGS (7)
  1. FORTESTA [Concomitant]
     Active Substance: TESTOSTERONE
  2. CARBAMAZEPINE 100MG CHEWABLE [Suspect]
     Active Substance: CARBAMAZEPINE
     Indication: TRIGEMINAL NEURALGIA
     Dosage: ?          QUANTITY:60 TABLET(S);?
     Route: 048
     Dates: start: 20170101, end: 20170126
  3. TAMSULOSIN [Concomitant]
     Active Substance: TAMSULOSIN
  4. PHENERGAN [Concomitant]
     Active Substance: PROMETHAZINE HYDROCHLORIDE
  5. ADVIL [Concomitant]
     Active Substance: IBUPROFEN
  6. LORAZEPAM. [Concomitant]
     Active Substance: LORAZEPAM
  7. TEMAZEPAM. [Concomitant]
     Active Substance: TEMAZEPAM

REACTIONS (19)
  - Chills [None]
  - Toxicity to various agents [None]
  - Vomiting [None]
  - Bundle branch block right [None]
  - Bone marrow failure [None]
  - Serotonin syndrome [None]
  - Arthralgia [None]
  - Motion sickness [None]
  - Hemiparesis [None]
  - Myalgia [None]
  - Dizziness [None]
  - Balance disorder [None]
  - Night sweats [None]
  - Visual impairment [None]
  - Fine motor skill dysfunction [None]
  - Speech disorder [None]
  - Nausea [None]
  - Hepatic function abnormal [None]
  - Cognitive disorder [None]

NARRATIVE: CASE EVENT DATE: 20170126
